FAERS Safety Report 15574125 (Version 8)
Quarter: 2019Q2

REPORT INFORMATION
  Report Type: Report from Study
  Country: PL (occurrence: PL)
  Receive Date: 20181101
  Receipt Date: 20190611
  Transmission Date: 20190711
  Serious: Yes (Hospitalization)
  Sender: FDA-Public Use
  Company Number: PL-ROCHE-2206585

PATIENT
  Age: 74 Year
  Sex: Male
  Weight: 78 kg

DRUGS (23)
  1. ATORIS [Concomitant]
     Active Substance: ATORVASTATIN CALCIUM
     Indication: HYPERCHOLESTEROLAEMIA
     Route: 048
  2. HYDROXYZINE [Concomitant]
     Active Substance: HYDROXYZINE HYDROCHLORIDE
     Indication: ANXIETY
     Route: 048
     Dates: start: 20180926
  3. LACTULOSE. [Concomitant]
     Active Substance: LACTULOSE
     Indication: CONSTIPATION
     Route: 048
     Dates: start: 20181025, end: 20181029
  4. RAMIPRIL. [Concomitant]
     Active Substance: RAMIPRIL
     Indication: HYPERTENSION
     Route: 048
     Dates: start: 20180926
  5. AZITHROMYCIN ANHYDROUS. [Concomitant]
     Active Substance: AZITHROMYCIN ANHYDROUS
     Indication: UPPER RESPIRATORY TRACT INFECTION
     Route: 048
     Dates: start: 20181025
  6. PARACETAMOL [Concomitant]
     Active Substance: ACETAMINOPHEN
     Indication: PYREXIA
     Route: 048
     Dates: start: 20181022
  7. ATEZOLIZUMAB. [Suspect]
     Active Substance: ATEZOLIZUMAB
     Indication: MALIGNANT MELANOMA
     Dosage: DOSE OF LAST ATEZOLIZUMAB ADMINISTERED PRIOR TO AE ONSET : 11/OCT/2018?DOSE OF LAST ATEZOLIZUMAB ADM
     Route: 042
     Dates: start: 20181011
  8. AMLODIPINE [Concomitant]
     Active Substance: AMLODIPINE BESYLATE
     Indication: HYPERTENSION
     Route: 048
     Dates: start: 20180926
  9. HYDROCORTISONUM [HYDROCORTISONE] [Concomitant]
     Indication: RASH
  10. PROPAFENONE. [Concomitant]
     Active Substance: PROPAFENONE
     Route: 048
     Dates: start: 20190219
  11. DOXYCYCLINUM [DOXYCYCLINE] [Concomitant]
     Indication: RASH
     Route: 048
     Dates: start: 20190103, end: 20190203
  12. PREDNISON [Concomitant]
     Active Substance: PREDNISONE
     Indication: RASH
     Route: 048
     Dates: start: 20190103, end: 20190204
  13. OXYCODON [Concomitant]
     Active Substance: OXYCODONE
     Indication: PAIN
     Route: 048
     Dates: start: 20180903, end: 20181025
  14. OXYDUO [Concomitant]
     Indication: PAIN
     Route: 048
     Dates: start: 20181025
  15. ASPARGIN [MAGNESIUM ASPARTATE;POTASSIUM ASPARTATE] [Concomitant]
     Route: 048
     Dates: start: 20181206
  16. BISOPROLOL [Concomitant]
     Active Substance: BISOPROLOL
     Route: 048
     Dates: start: 20181025, end: 20181123
  17. BISOPROLOL [Concomitant]
     Active Substance: BISOPROLOL
     Route: 048
     Dates: start: 20190205
  18. PROPAFENONE. [Concomitant]
     Active Substance: PROPAFENONE
     Route: 048
     Dates: start: 20181025, end: 20181205
  19. COBIMETINIB. [Suspect]
     Active Substance: COBIMETINIB
     Indication: MALIGNANT MELANOMA
     Dosage: DOSE OF LAST COBIMETINIB ADMINISTERED PRIOR TO SAE ONSET 24/OCT/2018?DOSE OF LAST COBIMETINIB ADMINI
     Route: 048
     Dates: start: 20181011
  20. TOBRADEX [Concomitant]
     Active Substance: DEXAMETHASONE\TOBRAMYCIN
     Indication: CONJUNCTIVITIS
     Route: 047
     Dates: start: 20181025
  21. HYDROCORTISONUM [HYDROCORTISONE] [Concomitant]
     Indication: ERYTHEMA
     Route: 061
     Dates: start: 20181025
  22. PROPAFENONE. [Concomitant]
     Active Substance: PROPAFENONE
     Route: 048
     Dates: start: 20181206, end: 20190207
  23. PREDNISON [Concomitant]
     Active Substance: PREDNISONE
     Route: 048
     Dates: start: 20190205, end: 20190209

REACTIONS (1)
  - Atrial flutter [Recovering/Resolving]

NARRATIVE: CASE EVENT DATE: 20181025
